FAERS Safety Report 25092774 (Version 1)
Quarter: 2025Q1

REPORT INFORMATION
  Report Type: Spontaneous
  Country: AR (occurrence: AR)
  Receive Date: 20250319
  Receipt Date: 20250319
  Transmission Date: 20250409
  Serious: Yes (Life-Threatening, Hospitalization, Other)
  Sender: SANDOZ
  Company Number: AR-002147023-NVSC2025AR019096

PATIENT
  Sex: Female

DRUGS (9)
  1. KISQALI [Suspect]
     Active Substance: RIBOCICLIB
     Dosage: 600 MG (3 OF 200 MG), QD, FOR 21 DAYS AND THEN 7 DAYS OF REST.
     Route: 065
     Dates: start: 20231201
  2. KISQALI [Suspect]
     Active Substance: RIBOCICLIB
     Indication: Breast cancer metastatic
     Route: 065
     Dates: start: 20231006
  3. KISQALI [Suspect]
     Active Substance: RIBOCICLIB
     Route: 065
     Dates: start: 2023, end: 20231011
  4. LETROZOLE [Suspect]
     Active Substance: LETROZOLE
     Dosage: 2.5 MG, QD WITHOUT REST
     Route: 065
     Dates: start: 20231201
  5. LETROZOLE [Suspect]
     Active Substance: LETROZOLE
     Indication: Breast cancer metastatic
     Route: 065
     Dates: start: 20231006
  6. LETROZOLE [Suspect]
     Active Substance: LETROZOLE
     Route: 065
     Dates: start: 2023, end: 20231006
  7. ZOLEDRONIC ACID [Suspect]
     Active Substance: ZOLEDRONIC ACID
     Indication: Product used for unknown indication
     Dosage: 4 MG, Q3MO
     Route: 065
     Dates: start: 20230929
  8. Anemidox [Concomitant]
     Indication: Product used for unknown indication
     Dosage: 1 DOSAGE FORM (CAPSULE), QD
     Route: 065
     Dates: start: 202312
  9. LEUPROLIDE [Concomitant]
     Active Substance: LEUPROLIDE
     Indication: Product used for unknown indication
     Route: 065
     Dates: start: 20230929

REACTIONS (8)
  - Platelet count decreased [Unknown]
  - Pneumonia [Unknown]
  - Pulmonary mass [Unknown]
  - Haematocrit abnormal [Unknown]
  - Haemoglobin abnormal [Unknown]
  - Tumour marker abnormal [Unknown]
  - Toxicity to various agents [Recovered/Resolved]
  - Anaemia [Unknown]

NARRATIVE: CASE EVENT DATE: 20230101
